FAERS Safety Report 11328715 (Version 1)
Quarter: 2015Q3

REPORT INFORMATION
  Report Type: Spontaneous
  Country: US (occurrence: US)
  Receive Date: 20150731
  Receipt Date: 20150731
  Transmission Date: 20151125
  Serious: Yes (Other)
  Sender: FDA-Public Use
  Company Number: US-ASTRAZENECA-2015SE72730

PATIENT
  Sex: Female

DRUGS (1)
  1. ANASTRAZOLE [Suspect]
     Active Substance: ANASTROZOLE
     Dosage: GENERIC
     Route: 048
     Dates: start: 201502

REACTIONS (7)
  - Fibromyalgia [Unknown]
  - Mood swings [Unknown]
  - Dizziness [Unknown]
  - Vitamin D abnormal [Unknown]
  - Breast pain [Unknown]
  - Fatigue [Unknown]
  - Arthralgia [Unknown]
